FAERS Safety Report 7786359-6 (Version None)
Quarter: 2011Q3

REPORT INFORMATION
  Report Type: 
  Country: None (occurrence: None)
  Receive Date: 20110929
  Receipt Date: 20110919
  Transmission Date: 20111222
  Serious: Yes (Hospitalization)
  Sender: FDA-Public Use
  Company Number: US-JNJFOC-20110908700

PATIENT
  Sex: Male
  Weight: 65.7 kg

DRUGS (2)
  1. MESALAMINE [Concomitant]
     Route: 048
  2. REMICADE [Suspect]
     Indication: COLITIS ULCERATIVE
     Route: 042
     Dates: start: 20110309, end: 20110706

REACTIONS (1)
  - COLITIS ULCERATIVE [None]
